FAERS Safety Report 10050289 (Version 2)
Quarter: 2014Q2

REPORT INFORMATION
  Report Type: Spontaneous
  Country: CA (occurrence: CA)
  Receive Date: 20140401
  Receipt Date: 20140401
  Transmission Date: 20141212
  Serious: Yes (Other)
  Sender: FDA-Public Use
  Company Number: CA-TEVA-470202USA

PATIENT
  Age: 56 Year
  Sex: Female
  Weight: 76.2 kg

DRUGS (8)
  1. TREANDA [Suspect]
     Indication: B-CELL LYMPHOMA
     Dosage: CYCLE 1
     Route: 042
     Dates: start: 20140114
  2. TREANDA [Suspect]
     Dosage: CYCLE 2
     Route: 042
  3. TREANDA [Suspect]
     Dosage: CYCLE 3
     Route: 042
     Dates: start: 20140325, end: 20140326
  4. RITUXAN [Suspect]
     Indication: B-CELL LYMPHOMA
     Route: 042
  5. PREDNISONE [Concomitant]
     Dosage: 15 MILLIGRAM DAILY;
     Route: 048
  6. VITAMIN B 12 [Concomitant]
     Route: 048
  7. CALCIUM [Concomitant]
  8. FOLIC ACID [Concomitant]

REACTIONS (4)
  - Autoimmune haemolytic anaemia [Unknown]
  - Neutrophil count abnormal [Unknown]
  - White blood cell count abnormal [Unknown]
  - Off label use [Unknown]
